FAERS Safety Report 6318105-7 (Version None)
Quarter: 2009Q3

REPORT INFORMATION
  Report Type: 
  Country: None (occurrence: None)
  Receive Date: 20090821
  Receipt Date: 20090814
  Transmission Date: 20100115
  Serious: Yes (Hospitalization)
  Sender: FDA-Public Use
  Company Number: FR-JNJFOC-20090805390

PATIENT
  Age: 37 Year
  Sex: Female
  Weight: 100 kg

DRUGS (1)
  1. RISPERDAL CONSTA [Suspect]
     Indication: MENTAL DISORDER
     Route: 030

REACTIONS (3)
  - IMPAIRED HEALING [None]
  - INJECTION SITE NECROSIS [None]
  - SUBCUTANEOUS ABSCESS [None]
